FAERS Safety Report 24872019 (Version 5)
Quarter: 2025Q4

REPORT INFORMATION
  Report Type: Spontaneous
  Country: EU (occurrence: EU)
  Receive Date: 20250122
  Receipt Date: 20251018
  Transmission Date: 20260117
  Serious: Yes (Other)
  Sender: ALEXION PHARMACEUTICALS
  Company Number: EU-ASTRAZENECA-202501EEA015148FR

PATIENT
  Age: 28 Year
  Sex: Female
  Weight: 54 kg

DRUGS (9)
  1. ULTOMIRIS [Suspect]
     Active Substance: RAVULIZUMAB-CWVZ
     Indication: Atypical haemolytic uraemic syndrome
     Dosage: 3000 MILLIGRAM, Q8W
     Dates: start: 20240717
  2. PROGRAF [Concomitant]
     Active Substance: TACROLIMUS
     Dosage: 2.5 MILLIGRAM (AT 8AM AND 8PM)
     Route: 065
  3. Imurel [Concomitant]
     Dosage: 100 MILLIGRAM (IN THE MORNING )
     Route: 065
  4. Solupred [Concomitant]
     Dosage: 5 MILLIGRAM
     Route: 065
  5. NIFEDIPINE [Concomitant]
     Active Substance: NIFEDIPINE
     Dosage: 30 MILLIGRAM (LP MORNING AND EVENING)
     Route: 065
  6. KARDEGIC [Concomitant]
     Active Substance: ASPIRIN DL-LYSINE
     Dosage: 75 MILLIGRAM (AT NOON)
     Route: 065
  7. Oracillin [Concomitant]
     Dosage: 1 MILLION INTERNATIONAL UNIT, BID
     Route: 065
  8. SODIUM BICARBONATE [Concomitant]
     Active Substance: SODIUM BICARBONATE
     Dosage: 500 MILLIGRAM, TID
     Route: 065
  9. DESOGESTREL [Concomitant]
     Active Substance: DESOGESTREL
     Dosage: 1 CAPSULE EVERY DAY OF THE MONTH
     Route: 065

REACTIONS (1)
  - Haptoglobin decreased [Recovered/Resolved]

NARRATIVE: CASE EVENT DATE: 20250115
